FAERS Safety Report 5765725-4 (Version None)
Quarter: 2008Q2

REPORT INFORMATION
  Report Type: 
  Country: None (occurrence: None)
  Receive Date: 20080611
  Receipt Date: 20080603
  Transmission Date: 20081010
  Serious: Yes (Other)
  Sender: FDA-Public Use
  Company Number: PHHY2008JP08585

PATIENT
  Age: 75 Year
  Sex: Male

DRUGS (6)
  1. DIOVAN [Suspect]
     Indication: HYPERTENSION
     Dosage: 80 MG/ DAY
     Route: 048
     Dates: start: 20080412, end: 20080527
  2. ADALAT [Concomitant]
     Dosage: 40 MG
     Route: 048
     Dates: start: 20080412
  3. ALLELOCK [Concomitant]
     Dosage: 10 MG
     Route: 048
     Dates: start: 20040416
  4. GLYSENNID [Concomitant]
     Dosage: 36 MG
     Route: 048
     Dates: start: 20040416
  5. HALCION [Concomitant]
     Dosage: 0.25 MG
     Route: 048
     Dates: start: 20040416
  6. NON-PYRINE COLD PREPARATION [Concomitant]
     Dosage: 3 G
     Route: 048
     Dates: start: 20040624

REACTIONS (4)
  - ATRIAL FIBRILLATION [None]
  - FEELING HOT [None]
  - HYPERHIDROSIS [None]
  - PULSE ABNORMAL [None]
